FAERS Safety Report 5062401-0 (Version None)
Quarter: 2006Q3

REPORT INFORMATION
  Report Type: 
  Country: None (occurrence: None)
  Receive Date: 20060721
  Receipt Date: 20060711
  Transmission Date: 20061208
  Serious: Yes (Hospitalization)
  Sender: FDA-Public Use
  Company Number: 111474ISR

PATIENT
  Age: 73 Year
  Sex: Male

DRUGS (1)
  1. MINOCYCLINE HCL [Suspect]
     Indication: SKIN INFECTION
     Dates: start: 20060101, end: 20060101

REACTIONS (3)
  - DIARRHOEA [None]
  - DIPLOPIA [None]
  - MEMORY IMPAIRMENT [None]
